FAERS Safety Report 12930071 (Version 1)
Quarter: 2016Q4

REPORT INFORMATION
  Report Type: Spontaneous
  Country: US (occurrence: US)
  Receive Date: 20161110
  Receipt Date: 20161110
  Transmission Date: 20170207
  Serious: No
  Sender: FDA-Public Use
  Company Number: US-009507513-1610USA013788

PATIENT
  Age: 58 Year
  Sex: Female

DRUGS (9)
  1. ZEPATIER [Suspect]
     Active Substance: ELBASVIR\GRAZOPREVIR
     Dosage: ONE TABLET DAILY
     Route: 048
     Dates: start: 201610
  2. VITAMIN D [Concomitant]
     Active Substance: CHOLECALCIFEROL
  3. ZEPATIER [Suspect]
     Active Substance: ELBASVIR\GRAZOPREVIR
     Dosage: ONE TABLET DAILY
     Route: 048
     Dates: start: 201610, end: 20161016
  4. ZEPATIER [Suspect]
     Active Substance: ELBASVIR\GRAZOPREVIR
     Indication: HEPATITIS C
     Dosage: ONE TABLET DAILY
     Route: 048
     Dates: start: 20161004, end: 20161012
  5. BACLOFEN. [Concomitant]
     Active Substance: BACLOFEN
  6. PRINIVIL [Concomitant]
     Active Substance: LISINOPRIL
     Dosage: UNK
  7. SEROQUEL [Concomitant]
     Active Substance: QUETIAPINE FUMARATE
  8. ZOCOR [Concomitant]
     Active Substance: SIMVASTATIN
     Dosage: UNK
  9. ATIVAN [Concomitant]
     Active Substance: LORAZEPAM

REACTIONS (3)
  - Blood glucose increased [Recovered/Resolved]
  - Intentional product misuse [Unknown]
  - Blood glucose increased [Unknown]

NARRATIVE: CASE EVENT DATE: 20161012
